FAERS Safety Report 8175397-X (Version None)
Quarter: 2012Q1

REPORT INFORMATION
  Report Type: 
  Country: None (occurrence: None)
  Receive Date: 20120229
  Receipt Date: 20120220
  Transmission Date: 20120608
  Serious: Yes (Congenital Anomaly)
  Sender: FDA-Public Use
  Company Number: DE-ASTRAZENECA-2010SE41131

PATIENT
  Age: 0 Year
  Sex: Male
  Weight: 3.7 kg

DRUGS (5)
  1. SEROQUEL [Suspect]
     Indication: BIPOLAR DISORDER
     Route: 064
     Dates: start: 20090201
  2. SEROQUEL [Suspect]
     Route: 064
     Dates: start: 20091210, end: 20100927
  3. VALPROATE SODIUM [Concomitant]
     Indication: BIPOLAR DISORDER
     Dosage: 600 MG/DAILY AND ALSO PRECONCEPTION USE
     Route: 064
     Dates: start: 20100101
  4. FOLIC ACID RATHIOPHARM [Concomitant]
     Indication: PROPHYLAXIS OF NEURAL TUBE DEFECT
     Route: 064
     Dates: start: 20100112
  5. CANIFUG [Concomitant]
     Indication: VULVOVAGINAL MYCOTIC INFECTION
     Dosage: SEVERALTIMES DURING PREGNANCY
     Route: 064

REACTIONS (1)
  - CLEFT LIP AND PALATE [None]
